FAERS Safety Report 13042216 (Version 2)
Quarter: 2017Q1

REPORT INFORMATION
  Report Type: Spontaneous
  Country: US (occurrence: US)
  Receive Date: 20161219
  Receipt Date: 20170113
  Transmission Date: 20170428
  Serious: Yes (Hospitalization)
  Sender: FDA-Public Use
  Company Number: US-PFIZER INC-2016586850

PATIENT
  Age: 78 Year
  Sex: Male
  Weight: 71 kg

DRUGS (5)
  1. LIPITOR [Suspect]
     Active Substance: ATORVASTATIN CALCIUM
     Dosage: 20 MG, 1X/DAY
  2. LIPITOR [Suspect]
     Active Substance: ATORVASTATIN CALCIUM
     Indication: BLOOD CHOLESTEROL ABNORMAL
     Dosage: 10 MG, DAILY
  3. LIPITOR [Suspect]
     Active Substance: ATORVASTATIN CALCIUM
     Dosage: 10 MG TO 20 MG
     Dates: start: 20160520
  4. TAMSULOSIN [Concomitant]
     Active Substance: TAMSULOSIN
     Indication: MICTURITION DISORDER
     Dosage: 0.4 MG, 2X/DAY
     Dates: start: 20130101
  5. COQ 10 [Concomitant]
     Active Substance: UBIDECARENONE
     Dosage: UNK
     Dates: start: 20060101

REACTIONS (3)
  - Amnesia [Recovered/Resolved]
  - Transient global amnesia [Recovered/Resolved]
  - Confusional state [Recovered/Resolved]

NARRATIVE: CASE EVENT DATE: 20160518
